FAERS Safety Report 11345116 (Version 1)
Quarter: 2015Q3

REPORT INFORMATION
  Report Type: Spontaneous
  Country: US (occurrence: None)
  Receive Date: 20150805
  Receipt Date: 20150805
  Transmission Date: 20151125
  Serious: Yes (Life-Threatening)
  Sender: FDA-Public Use
  Company Number: None

PATIENT
  Age: 33 Year
  Sex: Female
  Weight: 104.1 kg

DRUGS (1)
  1. HUMIRA [Suspect]
     Active Substance: ADALIMUMAB
     Indication: CROHN^S DISEASE
     Route: 058
     Dates: start: 20150717

REACTIONS (9)
  - Pain [None]
  - Headache [None]
  - Paraesthesia [None]
  - Epistaxis [None]
  - Chest discomfort [None]
  - Gastrooesophageal reflux disease [None]
  - Dizziness [None]
  - Body temperature fluctuation [None]
  - Influenza like illness [None]

NARRATIVE: CASE EVENT DATE: 20150718
